FAERS Safety Report 4416498-9 (Version None)
Quarter: 2004Q3

REPORT INFORMATION
  Report Type: 
  Country: None (occurrence: None)
  Receive Date: 20040802
  Receipt Date: 20040722
  Transmission Date: 20050211
  Serious: Yes (Other)
  Sender: FDA-Public Use
  Company Number: 2004PL000044

PATIENT
  Sex: Male

DRUGS (6)
  1. AZATHIOPRINE [Suspect]
     Dosage: 175 MG DAILY ORAL
     Route: 048
     Dates: start: 20011001
  2. ENBREL [Suspect]
     Dosage: 25 MG WEEKLY SUBCUTANEOUS
     Route: 058
     Dates: start: 20040101, end: 20040501
  3. PREDNISONE [Concomitant]
  4. HYDROXYCHLOROQUINE SULFATE [Concomitant]
  5. RISEDRONATE SODIUM [Concomitant]
  6. RAMIPRIL [Concomitant]

REACTIONS (1)
  - SQUAMOUS CELL CARCINOMA OF SKIN [None]
